FAERS Safety Report 17659641 (Version 1)
Quarter: 2020Q2

REPORT INFORMATION
  Report Type: Spontaneous
  Country: FR (occurrence: FR)
  Receive Date: 20200413
  Receipt Date: 20200413
  Transmission Date: 20200713
  Serious: Yes (Hospitalization)
  Sender: FDA-Public Use
  Company Number: FR-BAUSCH-BL-2020-010334

PATIENT
  Age: 16 Year
  Sex: Male
  Weight: 90 kg

DRUGS (3)
  1. RHINUREFLEX [Suspect]
     Active Substance: IBUPROFEN\PSEUDOEPHEDRINE HYDROCHLORIDE
     Indication: NASOPHARYNGITIS
     Route: 048
     Dates: start: 20200212, end: 20200214
  2. HYDROCORTISONE. [Suspect]
     Active Substance: HYDROCORTISONE
     Indication: FATIGUE
     Route: 048
     Dates: start: 20200212, end: 20200212
  3. DOLI RHUME [Suspect]
     Active Substance: ACETAMINOPHEN
     Indication: NASOPHARYNGITIS
     Route: 048
     Dates: start: 20200210, end: 20200211

REACTIONS (5)
  - Condition aggravated [Recovered/Resolved]
  - Aphasia [Recovered/Resolved]
  - Altered state of consciousness [Recovered/Resolved]
  - Asthenia [Recovered/Resolved]
  - Aggression [Recovered/Resolved]

NARRATIVE: CASE EVENT DATE: 202002
